FAERS Safety Report 8355997 (Version 3)
Quarter: 2013Q3

REPORT INFORMATION
  Report Type: Report from Study
  Country: FR (occurrence: FR)
  Receive Date: 20120126
  Receipt Date: 20130918
  Transmission Date: 20140515
  Serious: Yes (Death)
  Sender: FDA-Public Use
  Company Number: FR-MPIJNJ-2012-00569

PATIENT
  Sex: 0

DRUGS (4)
  1. VELCADE [Suspect]
     Indication: PLASMA CELL MYELOMA
     Dosage: 1.9 MG, UNK
     Route: 042
     Dates: start: 20111230
  2. CORDARONE [Concomitant]
     Indication: ARRHYTHMIA
     Dosage: 200 MG, UNK
     Dates: start: 20111108, end: 20120120
  3. RABEPRAZOLE [Concomitant]
     Indication: PROPHYLAXIS
     Dosage: 20 MG, UNK
     Dates: start: 20111201, end: 20120120
  4. DUROGESIC [Concomitant]
     Indication: PAIN
     Dosage: 50 UG, UNK
     Route: 062
     Dates: start: 20120118, end: 20120119

REACTIONS (1)
  - Clostridium difficile colitis [Fatal]
